FAERS Safety Report 17345396 (Version 3)
Quarter: 2020Q2

REPORT INFORMATION
  Report Type: Spontaneous
  Country: IE (occurrence: IE)
  Receive Date: 20200129
  Receipt Date: 20200512
  Transmission Date: 20200713
  Serious: Yes (Hospitalization)
  Sender: FDA-Public Use
  Company Number: IE-MYLANLABS-2020M1010189

PATIENT
  Age: 47 Year
  Sex: Male

DRUGS (2)
  1. CLOZARIL [Suspect]
     Active Substance: CLOZAPINE
     Dosage: UNK
     Route: 048
     Dates: start: 20200121, end: 20200428
  2. CLOZARIL [Suspect]
     Active Substance: CLOZAPINE
     Indication: SCHIZOPHRENIA
     Dosage: UNK
     Route: 048
     Dates: start: 20190807

REACTIONS (9)
  - Patient uncooperative [Unknown]
  - Agitation [Unknown]
  - Restlessness [Unknown]
  - Substance abuse [Unknown]
  - Product dose omission [Unknown]
  - Malaise [Unknown]
  - Aggression [Unknown]
  - Psychotic disorder [Unknown]
  - Judgement impaired [Unknown]

NARRATIVE: CASE EVENT DATE: 20191120
